FAERS Safety Report 24532588 (Version 1)
Quarter: 2024Q4

REPORT INFORMATION
  Report Type: Spontaneous
  Country: US (occurrence: US)
  Receive Date: 20241022
  Receipt Date: 20241022
  Transmission Date: 20250114
  Serious: Yes (Other)
  Sender: SANOFI AVENTIS
  Company Number: US-SANOFI-02255131

PATIENT
  Age: 85 Year
  Sex: Male

DRUGS (1)
  1. LANTUS SOLOSTAR [Suspect]
     Active Substance: INSULIN GLARGINE
     Indication: Diabetes mellitus
     Dosage: 35 IU, BID
     Route: 058

REACTIONS (7)
  - Glaucoma [Unknown]
  - Intraocular pressure increased [Unknown]
  - Visual impairment [Unknown]
  - Hypoacusis [Unknown]
  - Cough [Unknown]
  - Inappropriate schedule of product administration [Unknown]
  - Expired product administered [Unknown]
